FAERS Safety Report 6492099-6 (Version None)
Quarter: 2009Q4

REPORT INFORMATION
  Report Type: 
  Country: None (occurrence: None)
  Receive Date: 20091125
  Receipt Date: 20090519
  Transmission Date: 20100525
  Serious: Yes (Hospitalization)
  Sender: FDA-Public Use
  Company Number: 2009BH008391

PATIENT
  Age: 85 Year
  Sex: Female

DRUGS (12)
  1. DIANEAL [Suspect]
     Indication: PERITONEAL DIALYSIS
     Dosage: ; UNK ; IP
     Route: 033
     Dates: start: 20030101
  2. SENSIPAR [Concomitant]
  3. DULCOLAX [Concomitant]
  4. HECTOROL [Concomitant]
  5. COLACE [Concomitant]
  6. SPIRONOLACTONE [Concomitant]
  7. DIGITEK [Concomitant]
  8. ASPIRIN [Concomitant]
  9. LISINOPRIL [Concomitant]
  10. SLOW-K [Concomitant]
  11. AMLODIPINE BESYLATE [Concomitant]
  12. ATORVASTATIN CALCIUM [Concomitant]

REACTIONS (1)
  - PERITONITIS [None]
